FAERS Safety Report 18264233 (Version 1)
Quarter: 2020Q3

REPORT INFORMATION
  Report Type: Spontaneous
  Country: CA (occurrence: CA)
  Receive Date: 20200914
  Receipt Date: 20200914
  Transmission Date: 20201103
  Serious: Yes (Other)
  Sender: FDA-Public Use
  Company Number: CA-BAUSCH-BL-2020-025886

PATIENT
  Age: 87 Year
  Sex: Male

DRUGS (3)
  1. DEXAMETHASONE. [Suspect]
     Active Substance: DEXAMETHASONE
     Indication: IMMUNE THROMBOCYTOPENIA
     Route: 065
  2. ELTROMBOPAG OLAMINE [Suspect]
     Active Substance: ELTROMBOPAG OLAMINE
     Indication: IMMUNE THROMBOCYTOPENIA
     Route: 048
  3. GAMMAGARD LIQUID [Suspect]
     Active Substance: HUMAN IMMUNOGLOBULIN G
     Indication: PRODUCT USED FOR UNKNOWN INDICATION
     Route: 042

REACTIONS (7)
  - Drug ineffective [Unknown]
  - Platelet count decreased [Unknown]
  - Anaemia [Unknown]
  - Cerebrovascular accident [Unknown]
  - Condition aggravated [Unknown]
  - Intentional product use issue [Unknown]
  - Immune thrombocytopenia [Unknown]
